FAERS Safety Report 17581868 (Version 1)
Quarter: 2020Q1

REPORT INFORMATION
  Report Type: Spontaneous
  Country: FR (occurrence: FR)
  Receive Date: 20200325
  Receipt Date: 20200325
  Transmission Date: 20200409
  Serious: Yes (Hospitalization)
  Sender: FDA-Public Use
  Company Number: FR-MYLANLABS-2020M1030564

PATIENT
  Age: 68 Year
  Sex: Male
  Weight: 65 kg

DRUGS (4)
  1. VENLAFAXINE [Concomitant]
     Active Substance: VENLAFAXINE HYDROCHLORIDE
     Dosage: 37.5 MILLIGRAM, QD
     Route: 048
     Dates: start: 20200203, end: 20200211
  2. INNOVAIR [Concomitant]
     Active Substance: BECLOMETHASONE DIPROPIONATE\FORMOTEROL
     Indication: ASTHMA
     Dosage: INCONNUE
     Route: 055
  3. ALPRAZOLAM. [Concomitant]
     Active Substance: ALPRAZOLAM
     Indication: ANXIETY
     Dosage: 0.38 MILLIGRAM, QD
     Route: 048
     Dates: start: 20200203, end: 20200211
  4. RILUZOLE. [Suspect]
     Active Substance: RILUZOLE
     Indication: AMYOTROPHIC LATERAL SCLEROSIS
     Dosage: 100 MILLIGRAM, QD
     Route: 048
     Dates: start: 201903, end: 20200209

REACTIONS (1)
  - Pancreatitis acute [Recovering/Resolving]

NARRATIVE: CASE EVENT DATE: 20200130
